FAERS Safety Report 9054743 (Version 3)
Quarter: 2013Q2

REPORT INFORMATION
  Report Type: Spontaneous
  Country: US (occurrence: US)
  Receive Date: 20130208
  Receipt Date: 20130516
  Transmission Date: 20140414
  Serious: Yes (Life-Threatening, Hospitalization, Disabling)
  Sender: FDA-Public Use
  Company Number: US-009507513-1302USA002554

PATIENT
  Age: 84 Year
  Sex: Male

DRUGS (5)
  1. TICE BCG LIVE [Suspect]
     Indication: BLADDER CANCER
     Dosage: UNK
     Route: 043
     Dates: start: 201204, end: 201204
  2. ISONIAZID [Concomitant]
     Indication: HEPATITIS
  3. ETHAMBUTOL HYDROCHLORIDE [Concomitant]
     Dosage: UNK
     Route: 048
  4. RIFAMPIN [Concomitant]
     Route: 048
  5. MOXIFLOXACIN HYDROCHLORIDE [Concomitant]
     Route: 048

REACTIONS (4)
  - Mycotic aneurysm [Not Recovered/Not Resolved]
  - Bovine tuberculosis [Not Recovered/Not Resolved]
  - Aneurysm [Not Recovered/Not Resolved]
  - Pyrexia [Not Recovered/Not Resolved]
